FAERS Safety Report 9852926 (Version 1)
Quarter: 2014Q1

REPORT INFORMATION
  Report Type: Spontaneous
  Country: CH (occurrence: None)
  Receive Date: 20140127
  Receipt Date: 20140127
  Transmission Date: 20141002
  Serious: Yes (Hospitalization)
  Sender: FDA-Public Use
  Company Number: 2014014915

PATIENT
  Age: 50 Year
  Sex: Female
  Weight: 85 kg

DRUGS (3)
  1. FRAGMIN (DALTEPARIN SODIUM) SOLUTION FOR INJECTION [Suspect]
     Indication: PROPHYLAXIS
     Dosage: 2500 IU, 1X/DAY, SUBCUTANEOUS
     Route: 058
     Dates: start: 201312, end: 20131230
  2. ROCEPHIN (CEFTRIAXONE SODIUM) [Suspect]
     Indication: PROPHYLAXIS
     Dosage: 2 G, 1X/DAY, INTRAVENOUS
     Route: 042
     Dates: start: 20131230, end: 20131230
  3. PANTOZOL (PANTOPRAZOLE SODIUM) [Suspect]
     Indication: PROPHYLAXIS
     Dosage: 40 MG, 1X/DAY, INTRAVENOUS
     Route: 042
     Dates: start: 201312

REACTIONS (2)
  - Cholestatic liver injury [None]
  - Jaundice [None]
